FAERS Safety Report 8812604 (Version 1)
Quarter: 2012Q4

REPORT INFORMATION
  Report Type: 
  Country: US (occurrence: US)
  Receive Date: 20120927
  Receipt Date: 20120927
  Transmission Date: 20130627
  Serious: Yes (Other)
  Sender: FDA-Public Use
  Company Number: US-PFIZER INC-2012206591

PATIENT
  Age: 63 Year
  Sex: Female
  Weight: 53.52 kg

DRUGS (14)
  1. GENOTROPIN MQ [Suspect]
     Dosage: 1 mg, 1x/day
     Route: 058
  2. GENOTROPIN MQ [Suspect]
     Dosage: 0.4 mg, UNK
  3. ENTOCORT EC [Concomitant]
     Dosage: 3 mg, 1x/day
  4. ARMOUR THYROID [Concomitant]
     Dosage: 30 mg, UNK
  5. NISOLDIPINE [Concomitant]
     Dosage: 8.5 mg, UNK
  6. COQ10 [Concomitant]
     Dosage: 100 mg, UNK
  7. VITAMIN B COMPLEX [Concomitant]
     Dosage: UNK
  8. ZINC [Concomitant]
     Dosage: 30 mg, UNK
  9. VITAMIN D3 [Concomitant]
     Dosage: UNK
  10. ADRENAL COMPLEX [Concomitant]
     Dosage: UNK
  11. CANDIDA COMPLEX [Concomitant]
     Dosage: UNK
  12. BETIMOL [Concomitant]
     Dosage: 0.25%
  13. MILK THISTLE [Concomitant]
     Dosage: UNK
  14. HOMOCYSTEINE THIOLACTONE [Concomitant]
     Dosage: UNK

REACTIONS (2)
  - Gallbladder disorder [Unknown]
  - Weight decreased [Unknown]
